FAERS Safety Report 13647316 (Version 1)
Quarter: 2017Q2

REPORT INFORMATION
  Report Type: Report from Study
  Country: JP (occurrence: JP)
  Receive Date: 20170613
  Receipt Date: 20170613
  Transmission Date: 20170830
  Serious: Yes (Death)
  Sender: FDA-Public Use
  Company Number: JP-MYLANLABS-2017M1034901

PATIENT

DRUGS (1)
  1. PACLITAXEL. [Suspect]
     Active Substance: PACLITAXEL
     Indication: GASTRIC CANCER
     Dosage: WEEKLY SINGLE INFUSION OF 100 MG/M2 OVER 30 MINUTES, ON DAYS 1, 8, AND 15 OF EACH 28 DAY CYCLE
     Route: 041

REACTIONS (2)
  - Febrile neutropenia [Fatal]
  - Pneumonia [Fatal]
